FAERS Safety Report 21690348 (Version 1)
Quarter: 2022Q4

REPORT INFORMATION
  Report Type: Spontaneous
  Country: US (occurrence: None)
  Receive Date: 20221206
  Receipt Date: 20221206
  Transmission Date: 20230112
  Serious: Yes (Death, Hospitalization)
  Sender: FDA-Public Use
  Company Number: None

PATIENT
  Age: 84 Year
  Sex: Female
  Weight: 67.1 kg

DRUGS (3)
  1. FLUOROURACIL [Suspect]
     Active Substance: FLUOROURACIL
     Dates: end: 20221020
  2. IRINOTECAN [Suspect]
     Active Substance: IRINOTECAN
     Dosage: OTHER QUANTITY : 90.515 MG;?
     Dates: end: 20221020
  3. LEUCOVORIN CALCIUM [Suspect]
     Active Substance: LEUCOVORIN CALCIUM
     Dates: end: 20221020

REACTIONS (3)
  - Hypophagia [None]
  - Gait inability [None]
  - Small intestinal obstruction [None]

NARRATIVE: CASE EVENT DATE: 20221101
